FAERS Safety Report 7169679-8 (Version None)
Quarter: 2010Q4

REPORT INFORMATION
  Report Type: 
  Country: None (occurrence: None)
  Receive Date: 20101217
  Receipt Date: 20101209
  Transmission Date: 20110411
  Serious: Yes (Other)
  Sender: FDA-Public Use
  Company Number: US-JNJFOC-20100703618

PATIENT
  Sex: Male

DRUGS (4)
  1. LEVAQUIN [Suspect]
     Indication: INFECTION
     Route: 048
  2. LEVAQUIN [Suspect]
     Indication: SINUSITIS
     Route: 048
  3. CIPROFLOXACIN [Suspect]
     Indication: INFECTION
  4. PROZAC [Concomitant]
     Indication: DEPRESSION

REACTIONS (6)
  - ARTHRITIS [None]
  - BURSITIS [None]
  - EPICONDYLITIS [None]
  - MUSCLE RUPTURE [None]
  - ROTATOR CUFF SYNDROME [None]
  - TENDONITIS [None]
